FAERS Safety Report 5030796-X (Version None)
Quarter: 2006Q2

REPORT INFORMATION
  Report Type: 
  Country: None (occurrence: None)
  Receive Date: 20060614
  Receipt Date: 20060602
  Transmission Date: 20061013
  Serious: Yes (Hospitalization)
  Sender: FDA-Public Use
  Company Number: 2006072237

PATIENT
  Sex: Male

DRUGS (2)
  1. ZYVOX [Suspect]
     Indication: INFECTION
  2. REMERON [Concomitant]

REACTIONS (2)
  - HYPERCALCAEMIA [None]
  - WOUND DEHISCENCE [None]
